FAERS Safety Report 16372853 (Version 1)
Quarter: 2019Q2

REPORT INFORMATION
  Report Type: Spontaneous
  Country: US (occurrence: US)
  Receive Date: 20190530
  Receipt Date: 20190530
  Transmission Date: 20190711
  Serious: Yes (Other)
  Sender: FDA-Public Use
  Company Number: US-CLOVIS ONCOLOGY-CLO-2019-001016

PATIENT
  Sex: Female

DRUGS (1)
  1. RUBRACA [Suspect]
     Active Substance: RUCAPARIB CAMSYLATE
     Indication: OVARIAN CANCER
     Dosage: 600 MG, BID
     Route: 048
     Dates: start: 201905, end: 20190520

REACTIONS (12)
  - Aspartate aminotransferase increased [Unknown]
  - Blood albumin decreased [Unknown]
  - Kidney infection [Unknown]
  - Pleural effusion [Unknown]
  - Blood magnesium decreased [Unknown]
  - Brain natriuretic peptide increased [Unknown]
  - Dyspnoea [Unknown]
  - Alanine aminotransferase increased [Unknown]
  - Weight increased [Unknown]
  - Gastrostomy tube site complication [Unknown]
  - Oedema peripheral [Unknown]
  - Rash [Unknown]

NARRATIVE: CASE EVENT DATE: 201905
